FAERS Safety Report 6689270-7 (Version None)
Quarter: 2010Q2

REPORT INFORMATION
  Report Type: 
  Country: None (occurrence: None)
  Receive Date: 20100416
  Receipt Date: 20100402
  Transmission Date: 20101027
  Serious: Yes (Death, Hospitalization)
  Sender: FDA-Public Use
  Company Number: A-US2009-27241

PATIENT
  Age: 74 Year
  Sex: Female

DRUGS (3)
  1. TRACLEER [Suspect]
     Indication: PULMONARY ARTERIAL HYPERTENSION
     Dosage: MG, ORAL
     Route: 048
     Dates: start: 20090818, end: 20100101
  2. REVATIO [Concomitant]
  3. REMODULIN [Concomitant]

REACTIONS (10)
  - ALANINE AMINOTRANSFERASE INCREASED [None]
  - ASPARTATE AMINOTRANSFERASE INCREASED [None]
  - DEHYDRATION [None]
  - DIARRHOEA [None]
  - DISEASE PROGRESSION [None]
  - DYSPNOEA [None]
  - JOINT SWELLING [None]
  - MALAISE [None]
  - ORAL FUNGAL INFECTION [None]
  - PULMONARY ARTERIAL HYPERTENSION [None]
